FAERS Safety Report 4277323-2 (Version None)
Quarter: 2004Q1

REPORT INFORMATION
  Report Type: 
  Country: None (occurrence: None)
  Receive Date: 20040121
  Receipt Date: 20040113
  Transmission Date: 20041129
  Serious: Yes (Other)
  Sender: FDA-Public Use
  Company Number: K200400037

PATIENT
  Sex: Female
  Weight: 54.4 kg

DRUGS (3)
  1. THROMBIN-JMI [Suspect]
     Dosage: 5 ML, SINGLE, INTRAVENOUS
     Route: 042
     Dates: start: 20040109, end: 20040109
  2. FRESH FROZEN PLASMA [Concomitant]
  3. UNSPECIFIED MEDICATIONS [Concomitant]

REACTIONS (5)
  - AMNESIA [None]
  - APNOEA [None]
  - CONVULSION [None]
  - ERYTHEMA [None]
  - HEADACHE [None]
